FAERS Safety Report 8503172-2 (Version None)
Quarter: 2012Q3

REPORT INFORMATION
  Report Type: 
  Country: None (occurrence: None)
  Receive Date: 20120711
  Receipt Date: 20120709
  Transmission Date: 20120928
  Serious: No
  Sender: FDA-Public Use
  Company Number: US-PFIZER INC-2012164042

PATIENT
  Sex: Female

DRUGS (2)
  1. IBUPROFEN (ADVIL) [Suspect]
     Indication: HEADACHE
     Dosage: 200 MG, AS NEEDED
  2. IBUPROFEN (ADVIL) [Suspect]
     Indication: MYALGIA

REACTIONS (1)
  - HYPERHIDROSIS [None]
